FAERS Safety Report 23509972 (Version 1)
Quarter: 2024Q1

REPORT INFORMATION
  Report Type: Spontaneous
  Country: US (occurrence: US)
  Receive Date: 20240211
  Receipt Date: 20240211
  Transmission Date: 20240410
  Serious: Yes (Hospitalization)
  Sender: FDA-Public Use
  Company Number: US-JNJFOC-20240211759

PATIENT
  Age: 55 Year
  Sex: Female

DRUGS (18)
  1. OPSUMIT [Suspect]
     Active Substance: MACITENTAN
     Indication: Product used for unknown indication
     Route: 048
  2. TYVASO [Suspect]
     Active Substance: TREPROSTINIL
     Indication: Pulmonary arterial hypertension
     Route: 055
     Dates: start: 20230815, end: 20240123
  3. TYVASO [Suspect]
     Active Substance: TREPROSTINIL
     Route: 055
     Dates: start: 2023
  4. COLACE [Concomitant]
     Active Substance: DOCUSATE SODIUM
  5. DEXTROMETHORPHAN HYDROBROMIDE [Concomitant]
     Active Substance: DEXTROMETHORPHAN HYDROBROMIDE
  6. MYCOPHENOLATE MOFETIL [Concomitant]
     Active Substance: MYCOPHENOLATE MOFETIL
  7. ALBUTEROL SULFATE [Concomitant]
     Active Substance: ALBUTEROL SULFATE
  8. ATORVASTATIN CALCIUM [Concomitant]
     Active Substance: ATORVASTATIN CALCIUM
  9. SILDENAFIL CITRATE [Concomitant]
     Active Substance: SILDENAFIL CITRATE
  10. POTASSIUM CHLORIDE [Concomitant]
     Active Substance: POTASSIUM CHLORIDE
  11. VITAMINS [Concomitant]
     Active Substance: VITAMINS
  12. ASPIRIN [Concomitant]
     Active Substance: ASPIRIN
  13. FERRLECIT [Concomitant]
     Active Substance: SODIUM FERRIC GLUCONATE COMPLEX
  14. OXYGEN [Concomitant]
     Active Substance: OXYGEN
  15. FUROSEMIDE [Concomitant]
     Active Substance: FUROSEMIDE
  16. OMEPRAZOLE [Concomitant]
     Active Substance: OMEPRAZOLE
  17. ACETAMINOPHEN [Concomitant]
     Active Substance: ACETAMINOPHEN
  18. AMBRISENTAN [Concomitant]
     Active Substance: AMBRISENTAN

REACTIONS (8)
  - Hypertension [Unknown]
  - Dyspnoea [Unknown]
  - Oxygen consumption increased [Unknown]
  - Hot flush [Unknown]
  - Spinal deformity [Unknown]
  - Lung disorder [Unknown]
  - Cardiomegaly [Unknown]
  - Asthenia [Unknown]

NARRATIVE: CASE EVENT DATE: 20231201
